FAERS Safety Report 5941721-9 (Version None)
Quarter: 2008Q4

REPORT INFORMATION
  Report Type: 
  Country: None (occurrence: None)
  Receive Date: 20081105
  Receipt Date: 20081030
  Transmission Date: 20090506
  Serious: Yes (Hospitalization)
  Sender: FDA-Public Use
  Company Number: JP-BRISTOL-MYERS SQUIBB COMPANY-14390827

PATIENT
  Age: 66 Year
  Sex: Male

DRUGS (12)
  1. VEPESID [Suspect]
     Indication: PERIPHERAL T-CELL LYMPHOMA UNSPECIFIED
     Dosage: ALSO RECEIVED THERAPY IN SEP06
     Route: 041
     Dates: start: 20030501
  2. ENDOXAN [Suspect]
     Indication: PERIPHERAL T-CELL LYMPHOMA UNSPECIFIED
     Route: 041
     Dates: start: 20060101
  3. ENDOXAN [Suspect]
     Dosage: MAR07-UNKNOWN,ORAL.
     Route: 048
     Dates: start: 20070301
  4. DOXORUBICIN HCL [Suspect]
     Indication: PERIPHERAL T-CELL LYMPHOMA UNSPECIFIED
     Route: 041
     Dates: start: 20060101
  5. ONCOVIN [Suspect]
     Indication: PERIPHERAL T-CELL LYMPHOMA UNSPECIFIED
     Dosage: JAN06-UNKNOWN;2006-UNKNOWN;IVD
     Route: 041
     Dates: start: 20060101
  6. PIRARUBICIN HCL [Suspect]
     Indication: PERIPHERAL T-CELL LYMPHOMA UNSPECIFIED
     Route: 041
     Dates: start: 20060101
  7. IRINOTECAN HCL [Suspect]
     Indication: PERIPHERAL T-CELL LYMPHOMA UNSPECIFIED
     Route: 041
     Dates: start: 20060901
  8. METHOTREXATE [Suspect]
     Indication: PERIPHERAL T-CELL LYMPHOMA UNSPECIFIED
     Route: 041
     Dates: start: 20060101
  9. CYTARABINE [Suspect]
     Indication: PERIPHERAL T-CELL LYMPHOMA UNSPECIFIED
     Route: 041
     Dates: start: 20060101
  10. BLEOMYCIN SULFATE [Suspect]
     Indication: PERIPHERAL T-CELL LYMPHOMA UNSPECIFIED
     Route: 041
     Dates: start: 20060101
  11. PREDNISOLONE [Concomitant]
     Dosage: JAN06-UNKNOWN,2006-UNKNOWN,ORAL,MAR07-UNKNOWN.
     Route: 048
     Dates: start: 20060101
  12. RADIATION THERAPY [Concomitant]
     Indication: PERIPHERAL T-CELL LYMPHOMA UNSPECIFIED
     Dosage: AGAIN MAR-2007 - 35 GY RADIATION THERAPY WAS GIVEN
     Dates: start: 20030101

REACTIONS (1)
  - BURKITT'S LYMPHOMA [None]
